FAERS Safety Report 11777777 (Version 1)
Quarter: 2015Q4

REPORT INFORMATION
  Report Type: Spontaneous
  Country: US (occurrence: None)
  Receive Date: 20151124
  Receipt Date: 20151124
  Transmission Date: 20160304
  Serious: Yes (Hospitalization)
  Sender: FDA-Public Use
  Company Number: None

PATIENT
  Age: 28 Year
  Sex: Female
  Weight: 86.2 kg

DRUGS (1)
  1. TAMOXIFEN [Suspect]
     Active Substance: TAMOXIFEN
     Dates: end: 20151118

REACTIONS (7)
  - Myalgia [None]
  - Abdominal pain [None]
  - Anaemia [None]
  - Vaginal haemorrhage [None]
  - Viral upper respiratory tract infection [None]
  - Blood pressure systolic decreased [None]
  - Bronchitis [None]

NARRATIVE: CASE EVENT DATE: 20151118
